FAERS Safety Report 6361891-0 (Version None)
Quarter: 2009Q3

REPORT INFORMATION
  Report Type: 
  Country: None (occurrence: None)
  Receive Date: 20090821
  Receipt Date: 20090714
  Transmission Date: 20100115
  Serious: No
  Sender: FDA-Public Use
  Company Number: 8049014

PATIENT
  Age: 44 Year
  Sex: Female
  Weight: 81.6 kg

DRUGS (9)
  1. CIMZIA [Suspect]
     Indication: CROHN'S DISEASE
     Dosage: 400 MG SC
     Route: 058
     Dates: start: 20080801
  2. JUNEL FE [Concomitant]
  3. PROTONIX [Concomitant]
  4. TOPROL-XL [Concomitant]
  5. ZESTRIL [Concomitant]
  6. LONOX [Concomitant]
  7. IBUPROFEN [Concomitant]
  8. FISH OIL [Concomitant]
  9. GLUCOSAMINE [Concomitant]

REACTIONS (3)
  - ARTHRALGIA [None]
  - FUNGAL SKIN INFECTION [None]
  - NASOPHARYNGITIS [None]
